FAERS Safety Report 4320280-0 (Version None)
Quarter: 2004Q1

REPORT INFORMATION
  Report Type: 
  Country: None (occurrence: None)
  Receive Date: 20040317
  Receipt Date: 20040303
  Transmission Date: 20041129
  Serious: Yes (Hospitalization, Other)
  Sender: FDA-Public Use
  Company Number: 2004014971

PATIENT
  Age: 68 Year
  Sex: Female

DRUGS (6)
  1. ALPRESS (PRAZOSIN) [Suspect]
     Indication: ESSENTIAL HYPERTENSION
     Dosage: 5 MG, ORAL
     Route: 048
     Dates: end: 20040117
  2. AMLODIPINE [Suspect]
     Indication: ESSENTIAL HYPERTENSION
     Dosage: 5 MG, ORAL
     Route: 048
     Dates: end: 20040117
  3. ISOSORBIDE DINITRATE [Suspect]
     Indication: ILL-DEFINED DISORDER
     Dosage: INTRAVENOUS
     Route: 042
     Dates: end: 20040118
  4. NICARDIPINE HCL [Suspect]
     Indication: ESSENTIAL HYPERTENSION
     Dosage: INTRAVENOUS
     Route: 042
     Dates: start: 20040109, end: 20040118
  5. FUROSEMIDE [Suspect]
     Indication: ILL-DEFINED DISORDER
     Dosage: 250 MG, INTRAVENOUS
     Route: 042
     Dates: end: 20040117
  6. RILMENIDINE (RILMENIDINE) [Suspect]
     Indication: ESSENTIAL HYPERTENSION
     Dosage: 1 MG, ORAL
     Route: 048
     Dates: end: 20040101

REACTIONS (11)
  - BLOOD PRESSURE DECREASED [None]
  - BLOOD SODIUM DECREASED [None]
  - BRONCHIAL INFECTION [None]
  - COUGH [None]
  - DIALYSIS [None]
  - DRUG INTERACTION [None]
  - DYSPNOEA [None]
  - HAEMOGLOBIN DECREASED [None]
  - HYPERKALAEMIA [None]
  - RENAL FAILURE [None]
  - SUPERINFECTION [None]
